FAERS Safety Report 5592718-2 (Version None)
Quarter: 2007Q4

REPORT INFORMATION
  Report Type: 
  Country: None (occurrence: None)
  Receive Date: 20071217
  Receipt Date: 20071011
  Transmission Date: 20080405
  Serious: No
  Sender: FDA-Public Use
  Company Number: BDI-010333

PATIENT
  Age: 28 Year
  Sex: Male

DRUGS (2)
  1. MULTIHANCE [Suspect]
     Indication: NUCLEAR MAGNETIC RESONANCE IMAGING
     Dosage: 20 ML ONCE SY
     Dates: start: 20071010, end: 20071010
  2. MULTIHANCE [Suspect]
     Indication: PELVIC ABSCESS
     Dosage: 20 ML ONCE SY
     Dates: start: 20071010, end: 20071010

REACTIONS (2)
  - DYSPNOEA [None]
  - VOMITING [None]
